FAERS Safety Report 5045091-2 (Version None)
Quarter: 2006Q3

REPORT INFORMATION
  Report Type: 
  Country: None (occurrence: None)
  Receive Date: 20060707
  Receipt Date: 20060627
  Transmission Date: 20061208
  Serious: Yes (Death)
  Sender: FDA-Public Use
  Company Number: US-JNJFOC-20060606295

PATIENT
  Age: 41 Year
  Sex: Female

DRUGS (12)
  1. TOPAMAX [Suspect]
     Dosage: 100 MG IN THE MORNING AND 200 MG AT NIGHT
     Route: 048
  2. TOPAMAX [Suspect]
     Dosage: 100 MG IN THE MORNING AND 200 MG AT NIGHT
     Route: 048
  3. TOPAMAX [Suspect]
     Indication: MIGRAINE
     Route: 048
  4. DILAUDID [Concomitant]
  5. ACETAMINOPHEN [Concomitant]
  6. OXYCODONE HCL [Concomitant]
  7. WELLBUTRIN [Concomitant]
     Indication: DEPRESSION
  8. PREDNISONE TAB [Concomitant]
  9. FLUTICASONE PROPIONATE [Concomitant]
  10. SALMETEROL XINAFOATE [Concomitant]
  11. DOXEPIN [Concomitant]
     Indication: SLEEP DISORDER
  12. DULOXETINE HYDROCHLORIDE [Concomitant]
     Indication: DEPRESSION

REACTIONS (1)
  - OVERDOSE [None]
